FAERS Safety Report 16359338 (Version 2)
Quarter: 2019Q3

REPORT INFORMATION
  Report Type: Spontaneous
  Country: CZ (occurrence: CZ)
  Receive Date: 20190528
  Receipt Date: 20190806
  Transmission Date: 20191004
  Serious: Yes (Death, Other)
  Sender: FDA-Public Use
  Company Number: CZ-BRISTOL-MYERS SQUIBB COMPANY-BMS-2019-051912

PATIENT
  Age: 67 Year
  Sex: Male

DRUGS (3)
  1. CABOZANTINIB [Suspect]
     Active Substance: CABOZANTINIB
     Indication: PRODUCT USED FOR UNKNOWN INDICATION
     Route: 065
  2. NIVOLUMAB [Suspect]
     Active Substance: NIVOLUMAB
     Indication: PRODUCT USED FOR UNKNOWN INDICATION
     Dosage: 480 MILLIGRAM, Q4WK
     Route: 065
  3. NIVOLUMAB [Suspect]
     Active Substance: NIVOLUMAB
     Indication: CLEAR CELL RENAL CELL CARCINOMA
     Dosage: 3 MILLIGRAM/KILOGRAM, Q2WK
     Route: 065
     Dates: start: 201801, end: 2018

REACTIONS (1)
  - Death [Fatal]
